FAERS Safety Report 11528157 (Version 2)
Quarter: 2015Q4

REPORT INFORMATION
  Report Type: Spontaneous
  Country: FI (occurrence: FI)
  Receive Date: 20150921
  Receipt Date: 20151211
  Transmission Date: 20160304
  Serious: Yes (Other)
  Sender: FDA-Public Use
  Company Number: FI-AMGEN-FINSP2015096270

PATIENT
  Age: 56 Year
  Sex: Male

DRUGS (2)
  1. ENBREL [Suspect]
     Active Substance: ETANERCEPT
     Indication: RHEUMATOID ARTHRITIS
     Dosage: 50 MG, WEEKLY
     Route: 058
     Dates: start: 2009, end: 20141215
  2. PEGASYS [Suspect]
     Active Substance: PEGINTERFERON ALFA-2A
     Indication: HEPATITIS C
     Dosage: 180 MG, WEEKLY
     Route: 058
     Dates: start: 201504, end: 2015

REACTIONS (7)
  - Alanine aminotransferase increased [Unknown]
  - Hepatic fibrosis [Unknown]
  - Rheumatoid arthritis [Unknown]
  - Aspartate aminotransferase increased [Unknown]
  - Condition aggravated [Recovered/Resolved]
  - Hepatitis C [Recovered/Resolved]
  - Disease recurrence [Unknown]

NARRATIVE: CASE EVENT DATE: 2014
